FAERS Safety Report 11365498 (Version 1)
Quarter: 2015Q3

REPORT INFORMATION
  Report Type: Report from Study
  Country: FR (occurrence: FR)
  Receive Date: 20150811
  Receipt Date: 20150811
  Transmission Date: 20151125
  Serious: Yes (Other)
  Sender: FDA-Public Use
  Company Number: FR-PFIZER INC-2015254810

PATIENT
  Age: 48 Year
  Sex: Female

DRUGS (4)
  1. ONDANSETRON [Concomitant]
     Active Substance: ONDANSETRON
  2. TRAMADOL. [Concomitant]
     Active Substance: TRAMADOL
  3. CRIZOTINIB [Suspect]
     Active Substance: CRIZOTINIB
     Indication: NON-SMALL CELL LUNG CANCER
     Dosage: UNK
  4. FONDAPARINUX [Concomitant]
     Active Substance: FONDAPARINUX

REACTIONS (2)
  - Interstitial lung disease [Recovering/Resolving]
  - Systemic lupus erythematosus [Unknown]
